FAERS Safety Report 20515206 (Version 1)
Quarter: 2022Q1

REPORT INFORMATION
  Report Type: Spontaneous
  Country: AU (occurrence: AU)
  Receive Date: 20220224
  Receipt Date: 20220224
  Transmission Date: 20220423
  Serious: Yes (Hospitalization)
  Sender: FDA-Public Use
  Company Number: AU-009507513-2202AUS006449

PATIENT
  Age: 73 Year
  Sex: Female

DRUGS (2)
  1. PEMBROLIZUMAB [Suspect]
     Active Substance: PEMBROLIZUMAB
     Indication: Malignant melanoma
     Dosage: UNK
     Dates: start: 20210531
  2. ZEJULA [Suspect]
     Active Substance: NIRAPARIB
     Indication: Product used for unknown indication
     Dosage: 300 MG DAILY
     Route: 048
     Dates: start: 20210430

REACTIONS (4)
  - Blood creatinine increased [Not Recovered/Not Resolved]
  - Blood urine present [Unknown]
  - Purpura [Unknown]
  - Thrombocytopenia [Not Recovered/Not Resolved]
